FAERS Safety Report 23970717 (Version 1)
Quarter: 2024Q2

REPORT INFORMATION
  Report Type: Report from Study
  Country: IT (occurrence: IT)
  Receive Date: 20240613
  Receipt Date: 20240613
  Transmission Date: 20240716
  Serious: Yes (Other)
  Sender: FDA-Public Use
  Company Number: None

PATIENT
  Age: 72 Year
  Sex: Female

DRUGS (10)
  1. EYLEA [Suspect]
     Active Substance: AFLIBERCEPT
     Indication: Neovascular age-related macular degeneration
     Dosage: 2 MG, ONCE, SOLUTION FOR INJECTION,  40 MG/ML
     Route: 031
     Dates: start: 20231221, end: 20231221
  2. AVASTIN [Suspect]
     Active Substance: BEVACIZUMAB
     Indication: Neovascular age-related macular degeneration
     Dosage: 1 DF, ONCE
     Route: 031
     Dates: start: 20230710, end: 20230710
  3. AVASTIN [Suspect]
     Active Substance: BEVACIZUMAB
     Dosage: 1 DF, ONCE
     Route: 031
     Dates: start: 20230523, end: 20230523
  4. AVASTIN [Suspect]
     Active Substance: BEVACIZUMAB
     Dosage: 1 DF, ONCE
     Route: 031
     Dates: start: 20230306, end: 20230306
  5. AVASTIN [Suspect]
     Active Substance: BEVACIZUMAB
     Dosage: 1 DF, ONCE
     Route: 031
     Dates: start: 20230125, end: 20230125
  6. AVASTIN [Suspect]
     Active Substance: BEVACIZUMAB
     Dosage: 1 DF, ONCE
     Route: 031
     Dates: start: 20230110, end: 20230110
  7. AVASTIN [Suspect]
     Active Substance: BEVACIZUMAB
     Dosage: 1 DF, ONCE
     Route: 031
     Dates: start: 20221129, end: 20221129
  8. LEVOTHYROXINE SODIUM [Concomitant]
     Active Substance: LEVOTHYROXINE SODIUM
     Indication: Hypothyroidism
     Dosage: 100 ?G, QD
     Route: 048
  9. ATORVASTATIN [Concomitant]
     Active Substance: ATORVASTATIN
     Indication: Hypercholesterolaemia
     Dosage: 20 MG, QD
     Route: 048
  10. HYDROCHLOROTHIAZIDE\VALSARTAN [Concomitant]
     Active Substance: HYDROCHLOROTHIAZIDE\VALSARTAN
     Indication: Hypertension
     Dosage: 1 DF, QD, COTAREG 160/25 MG
     Route: 048

REACTIONS (4)
  - Condition aggravated [Not Recovered/Not Resolved]
  - Retinal oedema [Not Recovered/Not Resolved]
  - Subretinal fluid [Not Recovered/Not Resolved]
  - Therapeutic product effect decreased [Not Recovered/Not Resolved]

NARRATIVE: CASE EVENT DATE: 20240208
